FAERS Safety Report 8085988-2 (Version None)
Quarter: 2012Q1

REPORT INFORMATION
  Report Type: 
  Country: None (occurrence: None)
  Receive Date: 20120128
  Receipt Date: 20110413
  Transmission Date: 20120608
  Serious: No
  Sender: FDA-Public Use
  Company Number: US-ABBOTT-11P-163-0718882-00

PATIENT
  Age: 42 Year
  Sex: Female

DRUGS (3)
  1. HUMIRA [Suspect]
     Indication: CROHN'S DISEASE
     Dates: start: 20101101
  2. ACIFEX [Concomitant]
     Indication: GASTROOESOPHAGEAL REFLUX DISEASE
  3. FAMVIR [Concomitant]
     Indication: PROPHYLAXIS

REACTIONS (2)
  - OROPHARYNGEAL PAIN [None]
  - MALAISE [None]
